FAERS Safety Report 9699560 (Version 1)
Quarter: 2013Q4

REPORT INFORMATION
  Report Type: Spontaneous
  Country: US (occurrence: US)
  Receive Date: 20131120
  Receipt Date: 20131120
  Transmission Date: 20140711
  Serious: Yes (Hospitalization)
  Sender: FDA-Public Use
  Company Number: US-ABBVIE-13P-163-1170304-00

PATIENT
  Sex: Female
  Weight: 63.56 kg

DRUGS (1)
  1. DEPAKOTE ER [Suspect]
     Indication: MIGRAINE WITH AURA
     Dosage: PATIENT UNABLE TO RECALL
     Route: 048
     Dates: start: 2008, end: 2008

REACTIONS (2)
  - Crying [Recovered/Resolved]
  - Hyperventilation [Recovered/Resolved]
